FAERS Safety Report 12845407 (Version 1)
Quarter: 2016Q4

REPORT INFORMATION
  Report Type: Spontaneous
  Country: US (occurrence: US)
  Receive Date: 20161013
  Receipt Date: 20161013
  Transmission Date: 20170207
  Serious: No
  Sender: FDA-Public Use
  Company Number: US-JAZZ-2016-US-013610

PATIENT
  Age: 21 Year
  Sex: Male

DRUGS (11)
  1. SYMLINPEN [Concomitant]
     Active Substance: PRAMLINTIDE ACETATE
  2. ASMANEX [Concomitant]
     Active Substance: MOMETASONE FUROATE
  3. TRULICITY [Concomitant]
     Active Substance: DULAGLUTIDE
  4. TUMS EX [Concomitant]
     Active Substance: CALCIUM CARBONATE
  5. LOSARTAN POTASSIUM. [Concomitant]
     Active Substance: LOSARTAN POTASSIUM
  6. METFORMIN HCL [Concomitant]
     Active Substance: METFORMIN HYDROCHLORIDE
  7. PHENTERMINE. [Concomitant]
     Active Substance: PHENTERMINE
  8. TOPAMAX [Concomitant]
     Active Substance: TOPIRAMATE
  9. DYMISTA [Concomitant]
     Active Substance: AZELASTINE HYDROCHLORIDE\FLUTICASONE PROPIONATE
  10. SINGULAIR [Concomitant]
     Active Substance: MONTELUKAST SODIUM
  11. XYREM [Suspect]
     Active Substance: SODIUM OXYBATE
     Indication: NARCOLEPSY
     Dosage: 2.25 G, BID
     Route: 048
     Dates: start: 201607

REACTIONS (1)
  - Gastrooesophageal reflux disease [Not Recovered/Not Resolved]

NARRATIVE: CASE EVENT DATE: 201607
